FAERS Safety Report 13607422 (Version 3)
Quarter: 2017Q2

REPORT INFORMATION
  Report Type: Report from Study
  Country: GB (occurrence: GB)
  Receive Date: 20170602
  Receipt Date: 20170627
  Transmission Date: 20170830
  Serious: Yes (Other)
  Sender: FDA-Public Use
  Company Number: GB-GLAXOSMITHKLINE-GB2017GSK083849

PATIENT
  Age: 64 Year

DRUGS (3)
  1. UMECLIDINIUM BROMIDE [Suspect]
     Active Substance: UMECLIDINIUM BROMIDE
     Indication: CHRONIC OBSTRUCTIVE PULMONARY DISEASE
     Dosage: UNK
     Dates: start: 20161121, end: 20170124
  2. EKLIRA [Concomitant]
     Active Substance: ACLIDINIUM BROMIDE
  3. GLYCERYL TRINITRATE [Concomitant]
     Active Substance: NITROGLYCERIN
     Indication: ANGINA UNSTABLE
     Dosage: 400 UG, PRN
     Route: 048
     Dates: start: 20060213

REACTIONS (1)
  - Angina unstable [Not Recovered/Not Resolved]

NARRATIVE: CASE EVENT DATE: 20170113
